FAERS Safety Report 8943239 (Version 1)
Quarter: 2012Q4

REPORT INFORMATION
  Report Type: 
  Country: HK (occurrence: HK)
  Receive Date: 20121204
  Receipt Date: 20121204
  Transmission Date: 20130627
  Serious: Yes (Death, Hospitalization, Other)
  Sender: FDA-Public Use
  Company Number: HK-RANBAXY-2012RR-53052

PATIENT
  Age: 89 Year
  Sex: Female

DRUGS (1)
  1. METFORMIN [Suspect]
     Indication: TYPE 2 DIABETES MELLITUS
     Dosage: 1500 mg daily
     Route: 048

REACTIONS (2)
  - Lactic acidosis [Unknown]
  - Renal impairment [Unknown]
